FAERS Safety Report 12493057 (Version 1)
Quarter: 2016Q2

REPORT INFORMATION
  Report Type: Report from Study
  Country: US (occurrence: US)
  Receive Date: 20160623
  Receipt Date: 20160623
  Transmission Date: 20160815
  Serious: No
  Sender: FDA-Public Use
  Company Number: GXBR2016US002055

PATIENT
  Age: 38 Year
  Sex: Female

DRUGS (2)
  1. GLATOPA [Suspect]
     Active Substance: GLATIRAMER ACETATE
     Indication: MULTIPLE SCLEROSIS
     Dosage: 20 MG, QD
     Route: 058
     Dates: start: 20160604
  2. TRAMADOL. [Concomitant]
     Active Substance: TRAMADOL
     Indication: MUSCLE RELAXANT THERAPY
     Dosage: UNK DF, UNK
     Route: 065

REACTIONS (1)
  - Injection site inflammation [Not Recovered/Not Resolved]

NARRATIVE: CASE EVENT DATE: 20160604
